FAERS Safety Report 5968434-1 (Version None)
Quarter: 2008Q4

REPORT INFORMATION
  Report Type: 
  Country: None (occurrence: None)
  Receive Date: 20081119
  Receipt Date: 20080807
  Transmission Date: 20090506
  Serious: No
  Sender: FDA-Public Use
  Company Number: WAES 0804USA06376

PATIENT
  Age: 71 Year
  Sex: Male

DRUGS (2)
  1. JANUVIA [Suspect]
     Indication: TYPE 2 DIABETES MELLITUS
     Dosage: 100 MG/DAILY/PO; 100 MG/DAILY/PO
     Route: 048
     Dates: start: 20080101, end: 20080101
  2. JANUVIA [Suspect]
     Indication: TYPE 2 DIABETES MELLITUS
     Dosage: 100 MG/DAILY/PO; 100 MG/DAILY/PO
     Route: 048
     Dates: start: 20080315, end: 20080101

REACTIONS (5)
  - BLADDER OBSTRUCTION [None]
  - CONSTIPATION [None]
  - DIARRHOEA [None]
  - OROPHARYNGEAL PAIN [None]
  - SWELLING [None]
